FAERS Safety Report 12484394 (Version 2)
Quarter: 2016Q3

REPORT INFORMATION
  Report Type: Report from Study
  Country: US (occurrence: US)
  Receive Date: 20160621
  Receipt Date: 20160708
  Transmission Date: 20161109
  Serious: Yes (Death, Hospitalization, Other)
  Sender: FDA-Public Use
  Company Number: US-AMGEN-USACT2016076938

PATIENT
  Age: 58 Year
  Sex: Male
  Weight: 64.5 kg

DRUGS (7)
  1. DEXAMETHASONE. [Concomitant]
     Active Substance: DEXAMETHASONE
     Dosage: 4 MG, Q12H
     Route: 048
  2. ROMIPLOSTIM [Suspect]
     Active Substance: ROMIPLOSTIM
     Indication: THROMBOCYTOPENIA
     Dosage: 200 MUG, QWK
     Route: 058
     Dates: start: 20160601, end: 20160623
  3. METHADONE [Concomitant]
     Active Substance: METHADONE HYDROCHLORIDE
     Dosage: 10 MG, TID
     Route: 048
  4. FENTANYL. [Concomitant]
     Active Substance: FENTANYL
     Indication: PAIN
     Dosage: 100 MUG, UNK
     Route: 062
  5. BACLOFEN. [Concomitant]
     Active Substance: BACLOFEN
     Indication: HICCUPS
     Dosage: 10 MG, Q8H AS NEEDED
     Route: 048
  6. LYRICA [Concomitant]
     Active Substance: PREGABALIN
     Indication: PAIN
     Dosage: 150 MG, TID FOR 30 DAYS
     Route: 048
  7. MORPHINE [Concomitant]
     Active Substance: MORPHINE
     Dosage: 15 MG, Q3H
     Route: 048

REACTIONS (10)
  - Pulmonary alveolar haemorrhage [Unknown]
  - Cardiac arrest [Fatal]
  - Neutropenic sepsis [Unknown]
  - Aspergillus infection [Unknown]
  - Pneumonia [Unknown]
  - Septic shock [Unknown]
  - Urosepsis [Unknown]
  - Respiratory failure [Fatal]
  - Thrombocytopenia [Unknown]
  - Disease progression [Fatal]
